FAERS Safety Report 4795164-4 (Version None)
Quarter: 2005Q4

REPORT INFORMATION
  Report Type: 
  Country: None (occurrence: None)
  Receive Date: 20051006
  Receipt Date: 20051006
  Transmission Date: 20060501
  Serious: Yes (Hospitalization, Disabling)
  Sender: FDA-Public Use
  Company Number: None

PATIENT
  Age: 53 Year
  Sex: Male

DRUGS (1)
  1. TEQUIN [Suspect]
     Indication: STAPHYLOCOCCAL INFECTION
     Dosage: TAB 1X DAY FOR 10 DAYS
     Dates: start: 20050731, end: 20010809

REACTIONS (3)
  - HYPOAESTHESIA [None]
  - MYELOPATHY [None]
  - NEUROPATHY PERIPHERAL [None]
